FAERS Safety Report 10889287 (Version 1)
Quarter: 2015Q1

REPORT INFORMATION
  Report Type: Spontaneous
  Country: JP (occurrence: JP)
  Receive Date: 20150305
  Receipt Date: 20150305
  Transmission Date: 20150721
  Serious: Yes (Hospitalization, Disabling)
  Sender: FDA-Public Use
  Company Number: JP-MYLANLABS-2015M1005682

PATIENT

DRUGS (3)
  1. MYCOPHENOLATE MOFETIL CAPSULES 250MG [PFIZER] [Suspect]
     Active Substance: MYCOPHENOLATE MOFETIL
     Indication: RENAL TRANSPLANT
     Route: 048
  2. TACROLIMUS CAPSULES 0.5MG [PFIZER] [Suspect]
     Active Substance: TACROLIMUS
     Indication: RENAL TRANSPLANT
     Route: 048
  3. PREDNISOLONE TABLETS 1^HOEI^ [Suspect]
     Active Substance: PREDNISOLONE
     Indication: RENAL TRANSPLANT
     Route: 048

REACTIONS (6)
  - Blindness unilateral [Not Recovered/Not Resolved]
  - VIIth nerve paralysis [Not Recovered/Not Resolved]
  - Cranial nerve palsies multiple [Recovering/Resolving]
  - Sinusitis [Recovering/Resolving]
  - Ophthalmoplegia [Not Recovered/Not Resolved]
  - Zygomycosis [Recovering/Resolving]
